FAERS Safety Report 5067562-5 (Version None)
Quarter: 2006Q3

REPORT INFORMATION
  Report Type: 
  Country: None (occurrence: None)
  Receive Date: 20060727
  Receipt Date: 20060719
  Transmission Date: 20061208
  Serious: Yes (Other)
  Sender: FDA-Public Use
  Company Number: HQWYE166319JUL06

PATIENT
  Age: 28 Year
  Sex: Male

DRUGS (2)
  1. CYCLOSPORINE [Suspect]
     Indication: PROPHYLAXIS AGAINST TRANSPLANT REJECTION
     Dosage: 275/300 MG DAILY ORAL
     Route: 048
     Dates: start: 20060704
  2. CELLCEPT [Concomitant]

REACTIONS (1)
  - KIDNEY TRANSPLANT REJECTION [None]
